FAERS Safety Report 4570194-6 (Version None)
Quarter: 2005Q1

REPORT INFORMATION
  Report Type: 
  Country: None (occurrence: None)
  Receive Date: 20050202
  Receipt Date: 20041224
  Transmission Date: 20050727
  Serious: Yes (Life-Threatening, Hospitalization)
  Sender: FDA-Public Use
  Company Number: 200403312

PATIENT
  Age: 46 Year
  Sex: Female

DRUGS (17)
  1. SOSEGON/PENTAZOCINE HYDROCHLORIDE [Suspect]
     Indication: PAIN IN EXTREMITY
     Dosage: 25-50(MG)/DAY (ON AN AS-NEEDED BASIS)
     Route: 048
     Dates: start: 20041211, end: 20041220
  2. GLAKAY/MENATETRENONE [Concomitant]
  3. POLYFIL/POLYCARBOPHIL CALCIUM [Concomitant]
  4. LUVOX [Concomitant]
  5. CALTAN/PRECIPITATED CALCIUM CARBONATE [Concomitant]
  6. SENNARIDE/SENNOSIDE [Concomitant]
  7. SELBEX/TEPRENONE [Concomitant]
  8. LORAZEPAM [Concomitant]
  9. PREDNISOLONE [Concomitant]
  10. ALLOPURINOL [Concomitant]
  11. MECOBALAMIN [Concomitant]
  12. LIPITOR [Concomitant]
  13. PRORENAL/LIMAPROST ALFADEX [Concomitant]
  14. CARVEDILOL [Concomitant]
  15. PRORENAL/LIMAPROST ALFADEX [Concomitant]
  16. METROC/AMEZINIUM METILSULFATE [Concomitant]
  17. LANSOPRAZOLE [Concomitant]

REACTIONS (12)
  - DEPRESSED LEVEL OF CONSCIOUSNESS [None]
  - DISSEMINATED INTRAVASCULAR COAGULATION [None]
  - DRUG INTERACTION [None]
  - GENERALISED OEDEMA [None]
  - HEPATIC FUNCTION ABNORMAL [None]
  - HYPOTENSION [None]
  - PAIN [None]
  - PLATELET COUNT DECREASED [None]
  - STEVENS-JOHNSON SYNDROME [None]
  - TOXIC EPIDERMAL NECROLYSIS [None]
  - TOXIC SKIN ERUPTION [None]
  - WHITE BLOOD CELL COUNT INCREASED [None]
